FAERS Safety Report 5097261-5 (Version None)
Quarter: 2006Q3

REPORT INFORMATION
  Report Type: 
  Country: None (occurrence: None)
  Receive Date: 20060901
  Receipt Date: 20060823
  Transmission Date: 20061208
  Serious: Yes (Hospitalization)
  Sender: FDA-Public Use
  Company Number: TCI2006A03543

PATIENT
  Age: 74 Year
  Sex: Female

DRUGS (7)
  1. ACTOS [Suspect]
     Indication: BLOOD CREATINE PHOSPHOKINASE INCREASED
     Dosage: 15 MG (15 MG, 1 D) PER ORAL
     Route: 048
     Dates: end: 20060801
  2. ACTOS [Suspect]
     Indication: DIABETES MELLITUS
     Dosage: 15 MG (15 MG, 1 D) PER ORAL
     Route: 048
     Dates: end: 20060801
  3. ACTOS [Suspect]
     Indication: HYPOAESTHESIA
     Dosage: 15 MG (15 MG, 1 D) PER ORAL
     Route: 048
     Dates: end: 20060801
  4. ACTOS [Suspect]
     Indication: MUSCLE SPASMS
     Dosage: 15 MG (15 MG, 1 D) PER ORAL
     Route: 048
     Dates: end: 20060801
  5. ACTOS [Suspect]
     Indication: RHABDOMYOLYSIS
     Dosage: 15 MG (15 MG, 1 D) PER ORAL
     Route: 048
     Dates: end: 20060801
  6. AMLODIPINE BESYLATE [Concomitant]
  7. KANZO-TO [Concomitant]

REACTIONS (3)
  - HYPOAESTHESIA [None]
  - MUSCLE SPASMS [None]
  - RHABDOMYOLYSIS [None]
